FAERS Safety Report 5096033-5 (Version None)
Quarter: 2006Q3

REPORT INFORMATION
  Report Type: 
  Country: None (occurrence: None)
  Receive Date: 20060830
  Receipt Date: 20060819
  Transmission Date: 20061208
  Serious: Yes (Hospitalization, Other)
  Sender: FDA-Public Use
  Company Number: 2006101852

PATIENT
  Age: 46 Year
  Sex: Female
  Weight: 127.0072 kg

DRUGS (7)
  1. GEODON [Suspect]
     Indication: MANIA
     Dosage: UNK (UNK, 1 IN 1 D)
     Dates: start: 20051201, end: 20060101
  2. LITHIUM CARBONATE [Concomitant]
  3. DEPAKOTE [Concomitant]
  4. NAVANE [Concomitant]
  5. ALL OTHER THERAPEUTIC PRODUCTS [Concomitant]
  6. ZYPREXA [Concomitant]
  7. PAXIL [Concomitant]

REACTIONS (6)
  - AGGRESSION [None]
  - BLOOD THYROID STIMULATING HORMONE DECREASED [None]
  - EAR INFECTION [None]
  - THYROID DISORDER [None]
  - THYROXINE DECREASED [None]
  - WEIGHT DECREASED [None]
